FAERS Safety Report 16071528 (Version 5)
Quarter: 2019Q3

REPORT INFORMATION
  Report Type: Spontaneous
  Country: US (occurrence: US)
  Receive Date: 20190314
  Receipt Date: 20190704
  Transmission Date: 20191004
  Serious: Yes (Other)
  Sender: FDA-Public Use
  Company Number: US-ASTRAZENECA-2018SF48319

PATIENT
  Age: 24499 Day
  Sex: Female

DRUGS (29)
  1. PROTONIX [Suspect]
     Active Substance: PANTOPRAZOLE SODIUM
     Indication: GASTROOESOPHAGEAL REFLUX DISEASE
     Route: 065
     Dates: start: 20170522, end: 20170530
  2. SYMBICORT [Concomitant]
     Active Substance: BUDESONIDE\FORMOTEROL FUMARATE DIHYDRATE
  3. HEPARIN [Concomitant]
     Active Substance: HEPARIN SODIUM
  4. CLONAZEPAM. [Concomitant]
     Active Substance: CLONAZEPAM
  5. BACLOFEN. [Concomitant]
     Active Substance: BACLOFEN
  6. NEXIUM [Suspect]
     Active Substance: ESOMEPRAZOLE MAGNESIUM
     Indication: GASTROOESOPHAGEAL REFLUX DISEASE
     Dosage: ESMOPRAZOLE
     Route: 065
     Dates: start: 20170409, end: 20170530
  7. NEXIUM 24HR [Suspect]
     Active Substance: ESOMEPRAZOLE MAGNESIUM
     Route: 048
  8. ATORVASTATIN [Concomitant]
     Active Substance: ATORVASTATIN
  9. IBUPROFEN. [Concomitant]
     Active Substance: IBUPROFEN
  10. METHYLPREDNISOLONE. [Concomitant]
     Active Substance: METHYLPREDNISOLONE
  11. NEXIUM [Suspect]
     Active Substance: ESOMEPRAZOLE MAGNESIUM
     Indication: GASTROOESOPHAGEAL REFLUX DISEASE
     Route: 048
  12. ALBUTEROL. [Concomitant]
     Active Substance: ALBUTEROL
  13. PRILOSEC [Suspect]
     Active Substance: OMEPRAZOLE MAGNESIUM
     Route: 048
     Dates: start: 19950101, end: 20150101
  14. TIZANIDINE. [Concomitant]
     Active Substance: TIZANIDINE
  15. AMLODIPINE BESYLATE. [Concomitant]
     Active Substance: AMLODIPINE BESYLATE
  16. AMOXICILLIN. [Concomitant]
     Active Substance: AMOXICILLIN
  17. GLATIRAMER [Concomitant]
     Active Substance: GLATIRAMER
  18. ONDANSETRON [Concomitant]
     Active Substance: ONDANSETRON
  19. PRILOSEC OTC [Suspect]
     Active Substance: OMEPRAZOLE MAGNESIUM
     Route: 048
  20. PREVACID 24 HR [Suspect]
     Active Substance: LANSOPRAZOLE
     Route: 065
  21. AMPHETAMINE [Concomitant]
     Active Substance: AMPHETAMINE
  22. POTASSIUM CHLORIDE. [Concomitant]
     Active Substance: POTASSIUM CHLORIDE
  23. MELATONIN [Concomitant]
     Active Substance: MELATONIN
  24. VYVANSE [Concomitant]
     Active Substance: LISDEXAMFETAMINE DIMESYLATE
  25. LEVOTHYROXINE. [Concomitant]
     Active Substance: LEVOTHYROXINE
  26. COMBIVENT [Concomitant]
     Active Substance: ALBUTEROL SULFATE\IPRATROPIUM BROMIDE
  27. DULOXETINE. [Concomitant]
     Active Substance: DULOXETINE
  28. AMANTADINE. [Concomitant]
     Active Substance: AMANTADINE HYDROCHLORIDE
  29. TRIAMTERENE. [Concomitant]
     Active Substance: TRIAMTERENE

REACTIONS (3)
  - Acute kidney injury [Unknown]
  - Chronic kidney disease [Unknown]
  - Renal injury [Unknown]

NARRATIVE: CASE EVENT DATE: 20170409
